FAERS Safety Report 8144993-8 (Version None)
Quarter: 2012Q1

REPORT INFORMATION
  Report Type: 
  Country: None (occurrence: None)
  Receive Date: 20120217
  Receipt Date: 20120203
  Transmission Date: 20120608
  Serious: Yes (Hospitalization, Other)
  Sender: FDA-Public Use
  Company Number: CHPA2012US002665

PATIENT
  Sex: Female

DRUGS (1)
  1. EXCEDRIN TENSION HEADACHE CAPLETS [Suspect]
     Indication: ARTHRITIS
     Dosage: 2 DF, PRN
     Route: 048
     Dates: start: 19600101

REACTIONS (6)
  - PALLOR [None]
  - RASH [None]
  - PRURITUS [None]
  - HAEMOGLOBIN DECREASED [None]
  - URTICARIA [None]
  - DYSPNOEA [None]
